FAERS Safety Report 7478317-6 (Version None)
Quarter: 2011Q2

REPORT INFORMATION
  Report Type: 
  Country: None (occurrence: None)
  Receive Date: 20110513
  Receipt Date: 20110415
  Transmission Date: 20111010
  Serious: Yes (Other)
  Sender: FDA-Public Use
  Company Number: US-BAYER-200836016NA

PATIENT
  Age: 41 Year
  Sex: Female

DRUGS (37)
  1. PHENOXYBENZAMINE [Concomitant]
  2. PREDNISONE [Concomitant]
  3. FLUDROCORTISONE ACETATE [Concomitant]
  4. HEPARIN SODIUM [Concomitant]
  5. PROHANCE [Suspect]
     Dosage: UNK
     Dates: start: 20000217, end: 20000217
  6. HEPARIN [Concomitant]
  7. DIPHENHYDRAMIN HCL [Concomitant]
  8. MULTIVITAMIN PREPARATION + MINERAL SUPPLEMENT [Concomitant]
  9. PROHANCE [Suspect]
     Dosage: UNK
     Dates: start: 20060110, end: 20060110
  10. PROHANCE [Suspect]
     Dosage: UNK
     Dates: start: 20030114, end: 20030114
  11. PROHANCE [Suspect]
     Dosage: UNK
     Dates: start: 20000417, end: 20000417
  12. RABEPRAZOLE SODIUM [Concomitant]
  13. HYDROCORTISONE [Concomitant]
  14. ALENDRONATE SODIUM [Concomitant]
  15. FLUTICASONE PROPIONATE [Concomitant]
  16. IBUPROFEN [Concomitant]
  17. TUMS E-X [Concomitant]
  18. ATENOLOL [Concomitant]
  19. LORAZEPAM [Concomitant]
  20. EPOGEN [Concomitant]
  21. SSKI [Concomitant]
  22. B-COMPLEX [VITAMIN B NOS] [Concomitant]
  23. CALCITRIOL [Concomitant]
  24. MAGNEVIST [Suspect]
     Indication: NUCLEAR MAGNETIC RESONANCE IMAGING
     Dosage: 11 ML, ONCE
     Route: 042
     Dates: start: 20000714, end: 20000714
  25. PROHANCE [Suspect]
     Dosage: UNK
     Dates: start: 20010810, end: 20010810
  26. CORTEF [Concomitant]
  27. FLUDROCORTISONE ACETATE [Concomitant]
  28. EPOETIN NOS [Concomitant]
  29. CIPROFLOXACIN [Concomitant]
  30. LABETALOL [Concomitant]
  31. GADOLITE [Suspect]
     Indication: NUCLEAR MAGNETIC RESONANCE IMAGING
     Dosage: UNK
     Dates: start: 20061001, end: 20061001
  32. CALCIUM CARBONATE [Concomitant]
  33. DOXAZON [Concomitant]
  34. EPREX [Concomitant]
  35. CALCIJEX [Concomitant]
  36. APO-DOXAZOSIN [Concomitant]
  37. VENOFER [Concomitant]

REACTIONS (22)
  - SCAR [None]
  - LOWER EXTREMITY MASS [None]
  - SUBCUTANEOUS NODULE [None]
  - MUSCLE TIGHTNESS [None]
  - MOBILITY DECREASED [None]
  - HYPOAESTHESIA [None]
  - SKIN TIGHTNESS [None]
  - SKIN DISCOLOURATION [None]
  - ANXIETY [None]
  - SCLERAL DISORDER [None]
  - PAIN [None]
  - ASTHENIA [None]
  - SKIN HYPERTROPHY [None]
  - JOINT RANGE OF MOTION DECREASED [None]
  - BURNING SENSATION [None]
  - PRURITUS GENERALISED [None]
  - RASH PAPULAR [None]
  - UPPER EXTREMITY MASS [None]
  - SKIN INDURATION [None]
  - NEPHROGENIC SYSTEMIC FIBROSIS [None]
  - SKIN PLAQUE [None]
  - PRURITUS [None]
